FAERS Safety Report 9855946 (Version 2)
Quarter: 2014Q1

REPORT INFORMATION
  Report Type: Spontaneous
  Country: IT (occurrence: IT)
  Receive Date: 20140130
  Receipt Date: 20140319
  Transmission Date: 20141002
  Serious: Yes (Hospitalization)
  Sender: FDA-Public Use
  Company Number: IT-MYLANLABS-2014S1001252

PATIENT
  Age: 40 Year
  Sex: Female

DRUGS (4)
  1. PAROXETINE [Suspect]
     Dosage: 1120 MG TOTAL
     Route: 048
     Dates: start: 20131216, end: 20131216
  2. DELORAZEPAM [Suspect]
     Dosage: 100 MG TOTAL
     Route: 048
     Dates: start: 20131216, end: 20131216
  3. DEPAKIN [Suspect]
     Dosage: 12500 MG TOTAL
     Route: 048
     Dates: start: 20131216, end: 20131216
  4. ABILIFY [Suspect]
     Dosage: 60 MG TOTAL
     Route: 048
     Dates: start: 20131216, end: 20131216

REACTIONS (5)
  - Abdominal pain [Recovering/Resolving]
  - Faecal incontinence [Recovering/Resolving]
  - Sopor [Recovering/Resolving]
  - Overdose [Recovering/Resolving]
  - Drug abuse [Unknown]
